FAERS Safety Report 5024498-3 (Version None)
Quarter: 2006Q2

REPORT INFORMATION
  Report Type: 
  Country: None (occurrence: None)
  Receive Date: 20060426
  Receipt Date: 20060130
  Transmission Date: 20061013
  Serious: Yes (Other)
  Sender: FDA-Public Use
  Company Number: 2005154681

PATIENT
  Age: 51 Year
  Sex: Female

DRUGS (15)
  1. LYRICA [Suspect]
     Indication: NEURALGIA
     Dosage: (50 MG, UNKNOWN), ORAL
     Route: 048
     Dates: start: 20051026
  2. REMICADE [Suspect]
     Indication: ILL-DEFINED DISORDER
  3. PROCRIT [Concomitant]
  4. LEVOXYL [Concomitant]
  5. LEUCOVORIN CALCIUM [Concomitant]
  6. METHOTREXATE [Concomitant]
  7. PROGESTERONE [Concomitant]
  8. PROMETHAZINE [Concomitant]
  9. PREDNISONE TAB [Concomitant]
  10. ZOMETA [Concomitant]
  11. VICODIN [Concomitant]
  12. VITAMINS (VITAMINS) [Concomitant]
  13. ALL OTHER THERAPEUTIC PRODUCTS (ALL OTHER THERAPEUTIC PRODUCTS) [Concomitant]
  14. HUMIRA [Concomitant]
  15. EFFEXOR XR [Concomitant]

REACTIONS (2)
  - CARDIAC OUTPUT DECREASED [None]
  - MYALGIA [None]
